FAERS Safety Report 7534671-8 (Version None)
Quarter: 2011Q2

REPORT INFORMATION
  Report Type: 
  Country: None (occurrence: None)
  Receive Date: 20110609
  Receipt Date: 20110413
  Transmission Date: 20111010
  Serious: Yes (Other)
  Sender: FDA-Public Use
  Company Number: PHHY2011VN41196

PATIENT
  Age: 58 Year
  Sex: Female

DRUGS (4)
  1. GLUCOSAMINE SULFATE [Concomitant]
  2. CALCI D [Concomitant]
  3. ZOLEDRONIC ACID [Suspect]
     Indication: OSTEOPOROSIS
     Dosage: 5 MG/100 ML
     Route: 042
     Dates: start: 20110313
  4. CHONDROITIN SULFATE [Concomitant]

REACTIONS (3)
  - JOINT EFFUSION [None]
  - ARTHRALGIA [None]
  - JOINT SWELLING [None]
